FAERS Safety Report 6161717-4 (Version None)
Quarter: 2009Q2

REPORT INFORMATION
  Report Type: 
  Country: None (occurrence: None)
  Receive Date: 20090421
  Receipt Date: 20090408
  Transmission Date: 20091009
  Serious: Yes (Other)
  Sender: FDA-Public Use
  Company Number: US-ROCHE-616626

PATIENT
  Sex: Male
  Weight: 99.8 kg

DRUGS (2)
  1. TAMIFLU [Suspect]
     Route: 048
     Dates: start: 20090222, end: 20090223
  2. TYLENOL [Concomitant]
     Route: 048
     Dates: start: 20090222, end: 20090227

REACTIONS (6)
  - AGITATION [None]
  - DELIRIUM [None]
  - HALLUCINATION [None]
  - INSOMNIA [None]
  - NIGHTMARE [None]
  - PARANOIA [None]
